FAERS Safety Report 9889465 (Version 1)
Quarter: 2014Q1

REPORT INFORMATION
  Report Type: Spontaneous
  Country: CA (occurrence: CA)
  Receive Date: 20140211
  Receipt Date: 20140211
  Transmission Date: 20141002
  Serious: Yes (Other)
  Sender: FDA-Public Use
  Company Number: CA-ASTRAZENECA-2014SE07598

PATIENT
  Sex: Male

DRUGS (3)
  1. CRESTOR [Suspect]
     Route: 048
  2. CHLORPROMAZINE [Suspect]
     Route: 065
  3. SIMPONI [Suspect]
     Route: 058

REACTIONS (2)
  - Cholestasis [Recovering/Resolving]
  - Rheumatoid arthritis [Recovering/Resolving]
